FAERS Safety Report 17126355 (Version 1)
Quarter: 2019Q4

REPORT INFORMATION
  Report Type: Spontaneous
  Country: US (occurrence: US)
  Receive Date: 20191209
  Receipt Date: 20191209
  Transmission Date: 20200122
  Serious: No
  Sender: FDA-Public Use
  Company Number: NVSC2019US061183

PATIENT
  Age: 44 Year
  Sex: Male

DRUGS (1)
  1. POLYMYXIN B SULFATE,TRIMETHOPRIM [Suspect]
     Active Substance: POLYMYXIN B SULFATE\TRIMETHOPRIM
     Indication: DERMATITIS ATOPIC
     Route: 031

REACTIONS (1)
  - Drug ineffective [Unknown]
